FAERS Safety Report 25336143 (Version 2)
Quarter: 2025Q2

REPORT INFORMATION
  Report Type: Spontaneous
  Country: CN (occurrence: CN)
  Receive Date: 20250520
  Receipt Date: 20250603
  Transmission Date: 20250717
  Serious: Yes (Other)
  Sender: NOVARTIS
  Company Number: CN-002147023-NVSC2025CN079347

PATIENT
  Age: 37 Year
  Sex: Female

DRUGS (1)
  1. COSENTYX [Suspect]
     Active Substance: SECUKINUMAB
     Indication: Psoriasis
     Dosage: 300 MG, Q4W (ONCE EVERY FOUR WEEKS) (ROUTE: INJECT)
     Route: 050
     Dates: start: 202403, end: 202411

REACTIONS (8)
  - Breast cancer [Unknown]
  - Skin lesion [Not Recovered/Not Resolved]
  - Disease recurrence [Recovering/Resolving]
  - Psoriasis [Unknown]
  - Anxiety [Unknown]
  - Insomnia [Unknown]
  - White blood cell count decreased [Unknown]
  - Ultrasound Doppler abnormal [Unknown]

NARRATIVE: CASE EVENT DATE: 20240601
